FAERS Safety Report 7406778-7 (Version None)
Quarter: 2011Q2

REPORT INFORMATION
  Report Type: 
  Country: None (occurrence: None)
  Receive Date: 20110411
  Receipt Date: 20110329
  Transmission Date: 20111010
  Serious: Yes (Hospitalization)
  Sender: FDA-Public Use
  Company Number: PHHY2011KR26124

PATIENT
  Age: 16 Year
  Sex: Male

DRUGS (1)
  1. MINOCYCLINE [Suspect]
     Indication: ACNE
     Dosage: 50 MG, BID

REACTIONS (15)
  - CONJUNCTIVITIS [None]
  - PAROTID GLAND ENLARGEMENT [None]
  - LYMPHADENOPATHY [None]
  - STEVENS-JOHNSON SYNDROME [None]
  - PYREXIA [None]
  - BLOOD ALKALINE PHOSPHATASE ABNORMAL [None]
  - BLOOD AMYLASE INCREASED [None]
  - PAROTITIS [None]
  - PURPURA [None]
  - BLISTER [None]
  - RASH MACULAR [None]
  - LEUKOCYTOSIS [None]
  - MACULE [None]
  - RASH ERYTHEMATOUS [None]
  - ODYNOPHAGIA [None]
